FAERS Safety Report 17015138 (Version 1)
Quarter: 2019Q4

REPORT INFORMATION
  Report Type: Spontaneous
  Country: US (occurrence: US)
  Receive Date: 20191003
  Receipt Date: 20191003
  Transmission Date: 20200122
  Serious: Yes (Hospitalization)
  Sender: FDA-Public Use
  Company Number: None

PATIENT
  Age: 16 Year
  Sex: Female

DRUGS (4)
  1. SYMDEKO [Suspect]
     Active Substance: IVACAFTOR\TEZACAFTOR
     Indication: CYSTIC FIBROSIS
     Dosage: 100MG/150MG/150MG; QAM+QPM?
     Route: 048
     Dates: start: 20180128
  2. PULMOZYME [Suspect]
     Active Substance: DORNASE ALFA
     Dosage: 1MG/1ML QPM INHALATION
     Route: 055
     Dates: start: 20170427
  3. CAYSTON [Concomitant]
     Active Substance: AZTREONAM
  4. COLISTIN [Concomitant]
     Active Substance: COLISTIN

REACTIONS (2)
  - Product dose omission [None]
  - Infective pulmonary exacerbation of cystic fibrosis [None]

NARRATIVE: CASE EVENT DATE: 20190919
